FAERS Safety Report 6793090-2 (Version None)
Quarter: 2010Q2

REPORT INFORMATION
  Report Type: 
  Country: None (occurrence: None)
  Receive Date: 20100624
  Receipt Date: 20081128
  Transmission Date: 20101027
  Serious: No
  Sender: FDA-Public Use
  Company Number: US-PFIZER INC-2008100789

PATIENT
  Sex: Male
  Weight: 82.55 kg

DRUGS (1)
  1. XALATAN [Suspect]
     Indication: INTRAOCULAR PRESSURE INCREASED
     Dates: start: 20081101, end: 20081101

REACTIONS (1)
  - BLISTER [None]
